FAERS Safety Report 5076179-8 (Version None)
Quarter: 2006Q3

REPORT INFORMATION
  Report Type: 
  Country: None (occurrence: None)
  Receive Date: 20060807
  Receipt Date: 20060725
  Transmission Date: 20061208
  Serious: Yes (Death)
  Sender: FDA-Public Use
  Company Number: US200607004627

PATIENT
  Age: 45 Year
  Sex: Male

DRUGS (4)
  1. CYMBALTA [Suspect]
     Indication: DEPRESSION
     Dosage: 30 MG
     Dates: start: 20060615
  2. XANAX [Concomitant]
  3. ALCOHOL (ETHANOL) [Concomitant]
  4. MARIJUANA (CANNABIS) [Concomitant]

REACTIONS (13)
  - ALCOHOL USE [None]
  - CLAVICLE FRACTURE [None]
  - CRYING [None]
  - DEPRESSION [None]
  - DRUG SCREEN POSITIVE [None]
  - FACE INJURY [None]
  - HAEMOGLOBIN DECREASED [None]
  - HEAD INJURY [None]
  - INCORRECT DOSE ADMINISTERED [None]
  - INTERNAL INJURY [None]
  - PELVIC FRACTURE [None]
  - ROAD TRAFFIC ACCIDENT [None]
  - UPPER LIMB FRACTURE [None]
